FAERS Safety Report 20108027 (Version 1)
Quarter: 2021Q4

REPORT INFORMATION
  Report Type: Spontaneous
  Country: US (occurrence: US)
  Receive Date: 20211124
  Receipt Date: 20211124
  Transmission Date: 20220303
  Serious: No
  Sender: FDA-Public Use
  Company Number: US-KERYX BIOPHARMACEUTICALS INC.-2020US007137

PATIENT

DRUGS (3)
  1. AURYXIA [Suspect]
     Active Substance: TETRAFERRIC TRICITRATE DECAHYDRATE
     Indication: Product used for unknown indication
     Dosage: UNK
     Route: 048
  2. SEVELAMER [Concomitant]
     Active Substance: SEVELAMER
  3. TUMS                               /00193601/ [Concomitant]

REACTIONS (1)
  - Diarrhoea [Unknown]
